FAERS Safety Report 7206144-3 (Version None)
Quarter: 2010Q4

REPORT INFORMATION
  Report Type: 
  Country: None (occurrence: None)
  Receive Date: 20101229
  Receipt Date: 20101229
  Transmission Date: 20110411
  Serious: Yes (Hospitalization)
  Sender: FDA-Public Use
  Company Number: None

PATIENT
  Age: 66 Year
  Sex: Male
  Weight: 89.54 kg

DRUGS (16)
  1. DECITABINE - 0.2MG / KG SUB-Q INJECTION 2X PER WEEK [Suspect]
     Indication: CHRONIC MYELOID LEUKAEMIA
     Dosage: .2MG/KG SUB-Q 2X/WK
     Route: 058
  2. DECITABINE - 0.2MG / KG SUB-Q INJECTION 2X PER WEEK [Suspect]
     Indication: MYELODYSPLASTIC SYNDROME
     Dosage: .2MG/KG SUB-Q 2X/WK
     Route: 058
  3. VERAPAMIL [Concomitant]
  4. PRILOSEC [Concomitant]
  5. ACTOS [Concomitant]
  6. LORATADINE [Concomitant]
  7. MULTIVIT [Concomitant]
  8. ACYCLOVIR [Concomitant]
  9. ALLOPURINOL [Concomitant]
  10. CIPRO [Concomitant]
  11. COLACE [Concomitant]
  12. ZOCOR [Concomitant]
  13. DIFLUCAN [Concomitant]
  14. SENNA [Concomitant]
  15. AMARYL [Concomitant]
  16. MIRALAX [Concomitant]

REACTIONS (1)
  - FEBRILE NEUTROPENIA [None]
